FAERS Safety Report 8550885-2 (Version None)
Quarter: 2012Q3

REPORT INFORMATION
  Report Type: 
  Country: None (occurrence: None)
  Receive Date: 20120730
  Receipt Date: 20120223
  Transmission Date: 20120928
  Serious: No
  Sender: FDA-Public Use
  Company Number: US-GLAXOSMITHKLINE-A0967163A

PATIENT
  Age: 47 Year
  Sex: Male

DRUGS (6)
  1. ZANTAC [Suspect]
     Indication: GASTROOESOPHAGEAL REFLUX DISEASE
     Dosage: 150MG TWICE PER DAY
     Route: 048
     Dates: start: 20120216
  2. ENALAPRIL MALEATE [Concomitant]
  3. BLOOD PRESSURE MED [Concomitant]
  4. FLUTICASONE PROPIONATE [Concomitant]
  5. AMOXICILLIN + CLAVULANATE POTASSIUM [Concomitant]
  6. MOTRIM [Concomitant]

REACTIONS (1)
  - DRUG INEFFECTIVE [None]
